FAERS Safety Report 21732222 (Version 1)
Quarter: 2022Q4

REPORT INFORMATION
  Report Type: Spontaneous
  Country: US (occurrence: US)
  Receive Date: 20221215
  Receipt Date: 20221215
  Transmission Date: 20230113
  Serious: Yes (Hospitalization, Other)
  Sender: FDA-Public Use
  Company Number: US-BRISTOL-MYERS SQUIBB COMPANY-2022-149752

PATIENT
  Age: 81 Year
  Sex: Female
  Weight: 64.41 kg

DRUGS (1)
  1. REVLIMID [Suspect]
     Active Substance: LENALIDOMIDE
     Indication: Leukaemia
     Dosage: 21D ON 7D OFF
     Route: 048
     Dates: start: 20221101

REACTIONS (5)
  - Diarrhoea [Unknown]
  - Vomiting [Unknown]
  - Sepsis [Unknown]
  - Delirium [Unknown]
  - Dehydration [Unknown]
